FAERS Safety Report 8921885 (Version 3)
Quarter: 2013Q1

REPORT INFORMATION
  Report Type: Spontaneous
  Country: US (occurrence: US)
  Receive Date: 20121121
  Receipt Date: 20130124
  Transmission Date: 20140127
  Serious: Yes (Hospitalization, Other)
  Sender: FDA-Public Use
  Company Number: US-BAYER-2012-121681

PATIENT
  Age: 73 Year
  Sex: Female
  Weight: 71.66 kg

DRUGS (9)
  1. STIVARGA [Suspect]
     Indication: COLORECTAL CANCER METASTATIC
     Dosage: 160 MG,(40 MG X 4),  QD, 3 WK ON, 1 WK OFF
     Route: 048
     Dates: start: 20121105, end: 20121112
  2. AVASTIN [Concomitant]
     Dosage: UNK
     Dates: start: 20120829, end: 201211
  3. AVASTIN [Concomitant]
     Dosage: UNK
     Dates: start: 201204, end: 201207
  4. AVASTIN [Concomitant]
     Dosage: UNK
     Dates: start: 201010, end: 201203
  5. FOLFOX-4 [Concomitant]
     Dosage: UNK
     Dates: start: 201010, end: 201203
  6. FOLFIRI [Concomitant]
     Dosage: UNK
     Dates: start: 201204, end: 201207
  7. LEUCOVORIN CALCIUM [Concomitant]
     Dosage: UNK
     Dates: start: 201204, end: 201207
  8. OXALIPLATIN [Concomitant]
     Dosage: UNK
     Dates: start: 20120829, end: 201211
  9. XELODA [Concomitant]
     Dosage: UNK
     Dates: start: 20120829, end: 201211

REACTIONS (12)
  - Acute myocardial infarction [None]
  - Angina unstable [None]
  - Hypertension [None]
  - Hypotension [None]
  - Infection [Not Recovered/Not Resolved]
  - Pyrexia [Unknown]
  - Hypotension [Unknown]
  - Back pain [Unknown]
  - Nausea [Unknown]
  - Vomiting [Unknown]
  - Lung infiltration [Unknown]
  - Epistaxis [None]
